FAERS Safety Report 24184210 (Version 1)
Quarter: 2024Q3

REPORT INFORMATION
  Report Type: Spontaneous
  Country: CN (occurrence: CN)
  Receive Date: 20240807
  Receipt Date: 20240807
  Transmission Date: 20241017
  Serious: Yes (Life-Threatening)
  Sender: GE HEALTHCARE
  Company Number: CN-GE HEALTHCARE-2024CSU008743

PATIENT
  Age: 61 Year
  Sex: Male

DRUGS (1)
  1. OMNIPAQUE [Suspect]
     Active Substance: IOHEXOL
     Indication: Computerised tomogram heart
     Dosage: 65 ML, TOTAL
     Route: 042
     Dates: start: 20240723, end: 20240723

REACTIONS (5)
  - Atrioventricular block complete [Recovered/Resolved]
  - Electrocardiogram ST segment elevation [Recovered/Resolved]
  - Systolic anterior motion of mitral valve [Recovered/Resolved]
  - Anaphylactic shock [Recovered/Resolved]
  - Acute myocardial infarction [Recovered/Resolved]

NARRATIVE: CASE EVENT DATE: 20240723
